FAERS Safety Report 5454956-9 (Version None)
Quarter: 2007Q3

REPORT INFORMATION
  Report Type: 
  Country: None (occurrence: None)
  Receive Date: 20070917
  Receipt Date: 20070910
  Transmission Date: 20080115
  Serious: Yes (Other)
  Sender: FDA-Public Use
  Company Number: US-PFIZER INC-2006151786

PATIENT
  Sex: Female

DRUGS (3)
  1. CELEBREX [Suspect]
     Indication: ARTHRITIS
     Route: 048
     Dates: start: 20000101, end: 20030101
  2. BEXTRA [Suspect]
     Route: 048
  3. VIOXX [Suspect]
     Route: 048

REACTIONS (5)
  - BURNING SENSATION [None]
  - CEREBROVASCULAR ACCIDENT [None]
  - DYSPNOEA [None]
  - PRURITUS [None]
  - SWELLING [None]
